FAERS Safety Report 4429692-8 (Version None)
Quarter: 2004Q3

REPORT INFORMATION
  Report Type: 
  Country: None (occurrence: None)
  Receive Date: 20040820
  Receipt Date: 20040524
  Transmission Date: 20050211
  Serious: Yes (Other)
  Sender: FDA-Public Use
  Company Number: 200415406GDDC

PATIENT
  Sex: Female

DRUGS (6)
  1. DOCETAXEL [Suspect]
     Indication: BREAST CANCER
     Route: 042
     Dates: start: 20021217, end: 20030221
  2. PACLITAXEL [Suspect]
     Indication: BREAST CANCER
     Route: 042
     Dates: start: 20020624, end: 20021022
  3. EPIRUBICIN [Suspect]
     Indication: BREAST CANCER
     Route: 042
     Dates: start: 20020624, end: 20021022
  4. GEMCITABINE [Suspect]
     Indication: BREAST CANCER
     Route: 042
     Dates: start: 20020624, end: 20021025
  5. CYCLOPHOSPHAMIDE [Suspect]
     Indication: BREAST CANCER
     Dates: start: 20021217, end: 20030221
  6. ADRIAMYCIN PFS [Suspect]
     Indication: BREAST CANCER
     Route: 042
     Dates: start: 20021217, end: 20030221

REACTIONS (3)
  - ACUTE LYMPHOCYTIC LEUKAEMIA [None]
  - NEUTROPENIA [None]
  - PLATELET COUNT DECREASED [None]
